FAERS Safety Report 4789784-0 (Version None)
Quarter: 2005Q4

REPORT INFORMATION
  Report Type: 
  Country: None (occurrence: None)
  Receive Date: 20051006
  Receipt Date: 20050824
  Transmission Date: 20060501
  Serious: Yes (Other)
  Sender: FDA-Public Use
  Company Number: US-GLAXOSMITHKLINE-A0571655A

PATIENT
  Age: 71 Year
  Sex: Female
  Weight: 74.3 kg

DRUGS (2)
  1. FLOVENT [Suspect]
     Indication: ASTHMA
     Dosage: 4PUFF TWICE PER DAY
     Route: 055
     Dates: start: 20050824, end: 20050824
  2. SEREVENT [Concomitant]

REACTIONS (3)
  - DEVICE MALFUNCTION [None]
  - PHARMACEUTICAL PRODUCT COMPLAINT [None]
  - TACHYCARDIA [None]
